FAERS Safety Report 4731850-X (Version None)
Quarter: 2005Q3

REPORT INFORMATION
  Report Type: 
  Country: None (occurrence: None)
  Receive Date: 20050719
  Receipt Date: 20041129
  Transmission Date: 20060218
  Serious: Yes (Hospitalization)
  Sender: FDA-Public Use
  Company Number: 2004BI000554

PATIENT
  Age: 67 Year
  Sex: Female
  Weight: 74.8435 kg

DRUGS (5)
  1. AVONEX [Suspect]
     Indication: MULTIPLE SCLEROSIS
     Dosage: 30 UG;QW;IM
     Route: 030
     Dates: start: 20000101, end: 20030101
  2. AVONEX [Suspect]
     Indication: MULTIPLE SCLEROSIS
     Dosage: 30 UG;QW;IM;  7.5 UG;QW;IM;  15 UG;QW;IM
     Route: 030
     Dates: start: 20030101, end: 20040601
  3. AVONEX [Suspect]
     Indication: MULTIPLE SCLEROSIS
     Dosage: 30 UG;QW;IM;  7.5 UG;QW;IM;  15 UG;QW;IM
     Route: 030
     Dates: start: 20040601, end: 20040901
  4. AVONEX [Suspect]
     Indication: MULTIPLE SCLEROSIS
     Dosage: 30 UG;QW;IM;  7.5 UG;QW;IM;  15 UG;QW;IM
     Route: 030
     Dates: start: 20040901, end: 20041031
  5. AVONEX [Suspect]
     Indication: MULTIPLE SCLEROSIS
     Dosage: 30 UG;QW;IM
     Route: 030
     Dates: start: 20041107

REACTIONS (3)
  - ANAEMIA [None]
  - CHEST PAIN [None]
  - THROMBOSIS [None]
